FAERS Safety Report 11472104 (Version 1)
Quarter: 2015Q3

REPORT INFORMATION
  Report Type: Spontaneous
  Country: US (occurrence: US)
  Receive Date: 20150908
  Receipt Date: 20150908
  Transmission Date: 20151125
  Serious: No
  Sender: FDA-Public Use
  Company Number: US-PFIZER INC-2015285344

PATIENT
  Age: 64 Year
  Sex: Male
  Weight: 136.5 kg

DRUGS (1)
  1. IBRANCE [Suspect]
     Active Substance: PALBOCICLIB
     Indication: BREAST NEOPLASM
     Dosage: 125 MG, 1X/DAY
     Route: 048
     Dates: start: 20150314

REACTIONS (2)
  - Product use issue [Unknown]
  - White blood cell count decreased [Unknown]
